FAERS Safety Report 6879993-9 (Version None)
Quarter: 2010Q3

REPORT INFORMATION
  Report Type: 
  Country: None (occurrence: None)
  Receive Date: 20100728
  Receipt Date: 20100715
  Transmission Date: 20110219
  Serious: Yes (Hospitalization, Other)
  Sender: FDA-Public Use
  Company Number: PHHY2010FR46952

PATIENT
  Age: 28 Year
  Sex: Male

DRUGS (2)
  1. TEGRETOL [Suspect]
     Indication: EPILEPSY
     Dosage: FOR 10 YEARS
     Route: 048
  2. GARDENAL ^AVENTIS^ [Concomitant]
     Dosage: UNK
     Dates: start: 20100614

REACTIONS (3)
  - BLADDER OBSTRUCTION [None]
  - TESTICULAR OPERATION [None]
  - URINARY RETENTION [None]
